FAERS Safety Report 5072686-2 (Version None)
Quarter: 2006Q3

REPORT INFORMATION
  Report Type: 
  Country: None (occurrence: None)
  Receive Date: 20060807
  Receipt Date: 20060724
  Transmission Date: 20061208
  Serious: Yes (Hospitalization)
  Sender: FDA-Public Use
  Company Number: BR-ROCHE-457102

PATIENT
  Age: 15 Year
  Sex: Female
  Weight: 52 kg

DRUGS (1)
  1. ROACUTAN [Suspect]
     Indication: ACNE
     Route: 048
     Dates: start: 20060615, end: 20060709

REACTIONS (6)
  - ANOREXIA [None]
  - HYPOGLYCAEMIA [None]
  - ORAL VIRAL INFECTION [None]
  - PARAESTHESIA [None]
  - SYNCOPE [None]
  - WEIGHT DECREASED [None]
